FAERS Safety Report 4405951-X (Version None)
Quarter: 2004Q3

REPORT INFORMATION
  Report Type: 
  Country: None (occurrence: None)
  Receive Date: 20040723
  Receipt Date: 20040217
  Transmission Date: 20050211
  Serious: No
  Sender: FDA-Public Use
  Company Number: US-GLAXOSMITHKLINE-A0498510A

PATIENT
  Age: 62 Year
  Sex: Female

DRUGS (8)
  1. AVANDIA [Suspect]
     Dosage: 8MG PER DAY
     Route: 048
     Dates: start: 20000201, end: 20040216
  2. ZOCOR [Concomitant]
  3. ZETIA [Concomitant]
  4. XANAX [Concomitant]
  5. CELEXA [Concomitant]
  6. STARLIX [Concomitant]
  7. ASPIRIN [Concomitant]
  8. GLUCOPHAGE [Concomitant]

REACTIONS (2)
  - CONSTIPATION [None]
  - OEDEMA PERIPHERAL [None]
